FAERS Safety Report 7773574-0 (Version None)
Quarter: 2011Q3

REPORT INFORMATION
  Report Type: 
  Country: None (occurrence: None)
  Receive Date: 20110923
  Receipt Date: 20110919
  Transmission Date: 20111222
  Serious: Yes (Other)
  Sender: FDA-Public Use
  Company Number: US-BIOGENIDEC-2011BI006813

PATIENT
  Age: 26 Year
  Sex: Female

DRUGS (3)
  1. TYSABRI [Suspect]
     Indication: MULTIPLE SCLEROSIS
     Route: 042
     Dates: start: 20070409, end: 20110104
  2. PRENATAL VITAMINS [Concomitant]
     Dates: start: 20110120
  3. ZOFRAN [Concomitant]
     Indication: NAUSEA
     Dates: start: 20110120

REACTIONS (2)
  - BREECH PRESENTATION [None]
  - PREGNANCY [None]
